FAERS Safety Report 10445014 (Version 3)
Quarter: 2014Q4

REPORT INFORMATION
  Report Type: Spontaneous
  Country: IT (occurrence: IT)
  Receive Date: 20140910
  Receipt Date: 20141106
  Transmission Date: 20150528
  Serious: Yes (Hospitalization)
  Sender: FDA-Public Use
  Company Number: IT-TEVA-506686ISR

PATIENT
  Age: 77 Year
  Sex: Male

DRUGS (2)
  1. LIOMETACEN - PROMEDICA S.R.L. [Suspect]
     Active Substance: INDOMETACIN MEGLUMINE
     Indication: OSTEOARTHRITIS
     Route: 030
  2. ZOLPIDEM [Suspect]
     Active Substance: ZOLPIDEM\ZOLPIDEM TARTRATE
     Indication: PRODUCT USED FOR UNKNOWN INDICATION
     Route: 048

REACTIONS (2)
  - Confusional state [Recovered/Resolved]
  - Accidental exposure to product [Unknown]

NARRATIVE: CASE EVENT DATE: 20130330
